FAERS Safety Report 9267070 (Version 2)
Quarter: 2013Q3

REPORT INFORMATION
  Report Type: Report from Study
  Country: JP (occurrence: JP)
  Receive Date: 20130502
  Receipt Date: 20130802
  Transmission Date: 20140515
  Serious: Yes (Other)
  Sender: FDA-Public Use
  Company Number: JP-GENZYME-THYM-1003778

PATIENT
  Age: 53 Year
  Sex: Male
  Weight: 85 kg

DRUGS (10)
  1. THYMOGLOBULIN [Suspect]
     Indication: KIDNEY TRANSPLANT REJECTION
     Dosage: 100 MG, QD OVER 12 HOURS
     Route: 065
     Dates: start: 20120725, end: 20120731
  2. STEROID PULSE THERAPY [Concomitant]
     Indication: KIDNEY TRANSPLANT REJECTION
     Dosage: UNK
     Route: 065
     Dates: start: 201207
  3. GUSPERIMUS HYDROCHLORIDE [Concomitant]
     Indication: KIDNEY TRANSPLANT REJECTION
     Dosage: UNK
     Route: 065
     Dates: start: 201207
  4. DECADRON [Concomitant]
     Indication: PROPHYLAXIS
     Dosage: 6.6 MG, QD
     Route: 065
     Dates: start: 20120725, end: 20120731
  5. POLARAMINE [Concomitant]
     Indication: PROPHYLAXIS
     Dosage: 2 MG, QD
     Route: 048
     Dates: start: 20120725, end: 20120731
  6. CALONAL [Concomitant]
     Indication: PROPHYLAXIS
     Dosage: 200 MG, QD
     Route: 048
     Dates: start: 20120725, end: 20120731
  7. CYCLOSPORINE [Concomitant]
     Indication: IMMUNOSUPPRESSANT DRUG THERAPY
     Dosage: 250 MG, QD
     Route: 048
     Dates: start: 20120520
  8. MYCOPHENOLATE MOFETIL [Concomitant]
     Indication: IMMUNOSUPPRESSANT DRUG THERAPY
     Dosage: 1500 MG, QD
     Route: 048
     Dates: start: 20120520
  9. SOLU-MEDROL [Concomitant]
     Indication: IMMUNOSUPPRESSANT DRUG THERAPY
     Dosage: 2 MG- 48 MG QD
     Route: 048
     Dates: start: 20120520
  10. SOLU-MEDROL [Concomitant]
     Indication: IMMUNOSUPPRESSANT DRUG THERAPY
     Dosage: 500 MG, QD
     Route: 065
     Dates: start: 20120711, end: 20120713

REACTIONS (3)
  - Anaemia [Unknown]
  - Neutropenia [Recovered/Resolved]
  - Urinary tract infection [Recovered/Resolved]
